FAERS Safety Report 24687130 (Version 1)
Quarter: 2024Q4

REPORT INFORMATION
  Report Type: Spontaneous
  Country: US (occurrence: None)
  Receive Date: 20241130
  Receipt Date: 20241130
  Transmission Date: 20250114
  Serious: Yes (Other)
  Sender: Public
  Company Number: None

PATIENT
  Age: 58 Year
  Sex: Female
  Weight: 119.25 kg

DRUGS (18)
  1. RYBELSUS [Suspect]
     Active Substance: SEMAGLUTIDE
     Indication: Type 2 diabetes mellitus
     Dosage: OTHER QUANTITY : 30 TABLET(S);?FREQUENCY : DAILY;?
     Route: 048
     Dates: start: 20241006, end: 20241130
  2. RYBELSUS [Suspect]
     Active Substance: SEMAGLUTIDE
     Indication: Weight decreased
  3. ACTEMRA [Concomitant]
     Active Substance: TOCILIZUMAB
  4. HYDROXYCHOLORQUINE [Concomitant]
  5. VITAMIN D [Concomitant]
     Active Substance: VITAMIN D NOS
  6. METOPROLOL [Concomitant]
     Active Substance: METOPROLOL
  7. FARXIGA [Concomitant]
     Active Substance: DAPAGLIFLOZIN PROPANEDIOL
  8. CRESTOR [Concomitant]
     Active Substance: ROSUVASTATIN CALCIUM
  9. CYMBALTA [Concomitant]
     Active Substance: DULOXETINE HYDROCHLORIDE
  10. PROZAC [Concomitant]
     Active Substance: FLUOXETINE HYDROCHLORIDE
  11. BUSPIRONE [Concomitant]
  12. DIAZEPAM [Concomitant]
     Active Substance: DIAZEPAM
  13. PEPCID [Concomitant]
     Active Substance: FAMOTIDINE
  14. ZOFRAN [Concomitant]
     Active Substance: ONDANSETRON HYDROCHLORIDE
  15. POTASSIUM CHLORIDE [Concomitant]
  16. TYLENOL EXTRA STRENGTH [Concomitant]
     Active Substance: ACETAMINOPHEN
  17. ESTRADIOL [Concomitant]
     Active Substance: ESTRADIOL
  18. FLORAJEN PROBIOTIC [Concomitant]

REACTIONS (15)
  - Urinary tract infection [None]
  - Anxiety [None]
  - Major depression [None]
  - Irritability [None]
  - Therapy cessation [None]
  - Generalised anxiety disorder [None]
  - Mood altered [None]
  - Nausea [None]
  - Vomiting [None]
  - Diarrhoea [None]
  - Feeling of despair [None]
  - Anxiety [None]
  - Apathy [None]
  - Disinhibition [None]
  - Crying [None]

NARRATIVE: CASE EVENT DATE: 20241106
